FAERS Safety Report 13429414 (Version 2)
Quarter: 2017Q2

REPORT INFORMATION
  Report Type: Spontaneous
  Country: JP (occurrence: JP)
  Receive Date: 20170411
  Receipt Date: 20170504
  Transmission Date: 20170830
  Serious: No
  Sender: FDA-Public Use
  Company Number: JP-ASTRAZENECA-2017SE36090

PATIENT
  Age: 13750 Day
  Sex: Female
  Weight: 51 kg

DRUGS (9)
  1. MUCOSOLVAN L [Suspect]
     Active Substance: AMBROXOL HYDROCHLORIDE
     Indication: LOWER RESPIRATORY TRACT INFLAMMATION
     Route: 048
     Dates: start: 20170321, end: 20170326
  2. INTAL [Concomitant]
     Active Substance: CROMOLYN SODIUM
     Dosage: DOSE UNKNOWN
     Route: 055
  3. ASTOMIN [Suspect]
     Active Substance: DIMEMORFAN
     Indication: LOWER RESPIRATORY TRACT INFLAMMATION
     Route: 048
     Dates: start: 20170401, end: 20170410
  4. VENETLIN [Concomitant]
     Active Substance: ALBUTEROL SULFATE
     Dosage: 0.3ML UNKNOWN
     Route: 055
  5. SYMBICORT [Suspect]
     Active Substance: BUDESONIDE\FORMOTEROL FUMARATE DIHYDRATE
     Indication: ASTHMA
     Dosage: 2 PUFF DAILY
     Route: 055
     Dates: start: 20170331
  6. BAKUMONDOTO [Suspect]
     Active Substance: HERBALS
     Indication: LOWER RESPIRATORY TRACT INFLAMMATION
     Route: 048
     Dates: start: 20170321, end: 20170326
  7. GRACEVIT [Suspect]
     Active Substance: SITAFLOXACIN
     Indication: LOWER RESPIRATORY TRACT INFLAMMATION
     Route: 048
     Dates: start: 20170321, end: 20170326
  8. ASTOMIN [Suspect]
     Active Substance: DIMEMORFAN
     Indication: LOWER RESPIRATORY TRACT INFLAMMATION
     Dosage: DOSE UNKNOWN
     Route: 048
     Dates: start: 20170321, end: 20170326
  9. TULOBUTEROL [Suspect]
     Active Substance: TULOBUTEROL
     Indication: LOWER RESPIRATORY TRACT INFLAMMATION
     Route: 003
     Dates: start: 20170321, end: 20170326

REACTIONS (1)
  - Diarrhoea [Recovering/Resolving]

NARRATIVE: CASE EVENT DATE: 20170402
